FAERS Safety Report 5866042-4 (Version None)
Quarter: 2008Q3

REPORT INFORMATION
  Report Type: 
  Country: None (occurrence: None)
  Receive Date: 20080829
  Receipt Date: 20080827
  Transmission Date: 20090109
  Serious: No
  Sender: FDA-Public Use
  Company Number: US-BOEHRINGER INGELHEIM GMBH, GERMANY-2008-BP-10448BP

PATIENT
  Sex: Female
  Weight: 84 kg

DRUGS (9)
  1. SPIRIVA [Suspect]
     Indication: CHRONIC OBSTRUCTIVE PULMONARY DISEASE
     Route: 055
     Dates: start: 20080301
  2. PROTONIX [Concomitant]
  3. LEVAQUIN [Concomitant]
  4. LACTULOSE [Concomitant]
  5. SPIRONOLACTONE [Concomitant]
  6. NADOLOL [Concomitant]
  7. TRAMADOL HCL [Concomitant]
  8. LYRICA [Concomitant]
  9. ALDACTONE [Concomitant]

REACTIONS (1)
  - DYSPNOEA [None]
